FAERS Safety Report 6123951-9 (Version None)
Quarter: 2009Q1

REPORT INFORMATION
  Report Type: 
  Country: None (occurrence: None)
  Receive Date: 20090317
  Receipt Date: 20090302
  Transmission Date: 20090719
  Serious: Yes (Death, Life-Threatening, Hospitalization, Other)
  Sender: FDA-Public Use
  Company Number: 2009EU000975

PATIENT
  Age: 73 Year
  Sex: Female
  Weight: 41 kg

DRUGS (9)
  1. TACROLIMUS [Suspect]
     Dosage: 3 MG, UID/QD,
  2. REMICADE [Suspect]
     Indication: RHEUMATOID ARTHRITIS
     Dosage: 150 MG, CYCLIC, IV NOS
     Route: 042
     Dates: start: 20060928, end: 20070719
  3. VANCOMYCIN HYDROCHLORIDE [Suspect]
     Dosage: IV NOS
     Route: 042
  4. ARTIFICIAL TEARS (HYPROMELLOSE) [Concomitant]
  5. ATENOLOL [Concomitant]
  6. CYANOCOBALAMIN [Concomitant]
  7. DIDRONEL [Concomitant]
  8. FOLIC ACID [Concomitant]
  9. PREDNISOLONE [Concomitant]

REACTIONS (11)
  - BURSITIS INFECTIVE [None]
  - CEREBRAL INFARCTION [None]
  - CHEST PAIN [None]
  - CONTRAST MEDIA REACTION [None]
  - DEHYDRATION [None]
  - DISEASE PROGRESSION [None]
  - EYE OPERATION [None]
  - LOSS OF CONSCIOUSNESS [None]
  - PULMONARY OEDEMA [None]
  - RENAL FAILURE ACUTE [None]
  - RHEUMATOID ARTHRITIS [None]
